FAERS Safety Report 21337845 (Version 4)
Quarter: 2022Q4

REPORT INFORMATION
  Report Type: Report from Study
  Country: JP (occurrence: JP)
  Receive Date: 20220915
  Receipt Date: 20221214
  Transmission Date: 20230113
  Serious: No
  Sender: FDA-Public Use
  Company Number: JP-AMGEN-JPNSP2022130054

PATIENT
  Age: 67 Year
  Sex: Male

DRUGS (3)
  1. SOTORASIB [Suspect]
     Active Substance: SOTORASIB
     Indication: Non-small cell lung cancer stage IV
     Dosage: 960 MILLIGRAM, QD
     Route: 048
     Dates: start: 20220518, end: 20220712
  2. SOTORASIB [Suspect]
     Active Substance: SOTORASIB
     Indication: K-ras gene mutation
     Dosage: 480 MILLIGRAM, QD
     Route: 048
     Dates: start: 20220727, end: 20220823
  3. SOTORASIB [Suspect]
     Active Substance: SOTORASIB
     Dosage: 240 MILLIGRAM
     Route: 048
     Dates: start: 20220906

REACTIONS (2)
  - Hepatic function abnormal [Recovered/Resolved]
  - Hepatic function abnormal [Recovered/Resolved]

NARRATIVE: CASE EVENT DATE: 20220712
